FAERS Safety Report 12644625 (Version 1)
Quarter: 2016Q3

REPORT INFORMATION
  Report Type: Spontaneous
  Country: AT (occurrence: AT)
  Receive Date: 20160811
  Receipt Date: 20160811
  Transmission Date: 20161109
  Serious: Yes (Death, Other)
  Sender: FDA-Public Use
  Company Number: AT-JAZZ-2016-AT-014909

PATIENT
  Age: 48 Year
  Sex: Female

DRUGS (1)
  1. DEFITELIO [Suspect]
     Active Substance: DEFIBROTIDE SODIUM
     Indication: MULTIPLE ORGAN DYSFUNCTION SYNDROME

REACTIONS (1)
  - Death [Fatal]
